FAERS Safety Report 22585847 (Version 2)
Quarter: 2023Q2

REPORT INFORMATION
  Report Type: Report from Study
  Country: MX (occurrence: MX)
  Receive Date: 20230610
  Receipt Date: 20230626
  Transmission Date: 20230721
  Serious: Yes (Other)
  Sender: FDA-Public Use
  Company Number: MX-002147023-NVSC2023MX132720

PATIENT
  Sex: Female
  Weight: 70 kg

DRUGS (8)
  1. ENTRESTO [Suspect]
     Active Substance: SACUBITRIL\VALSARTAN
     Indication: Cardiac failure
     Dosage: 50 MG, BID
     Route: 048
     Dates: start: 2022
  2. ENTRESTO [Suspect]
     Active Substance: SACUBITRIL\VALSARTAN
     Dosage: 50 MG, BID (EVERY 12 HOURS)
     Route: 048
     Dates: start: 2022
  3. DAPAGLIFLOZIN [Concomitant]
     Active Substance: DAPAGLIFLOZIN
     Indication: Cardiac disorder
     Dosage: 1 DOSAGE FORM, QD (START DATE: 3 YEARS AGO (THE EXACT DATE IS UNKNOWN), EVERY 24 HOURS)
     Route: 048
  4. SPIRONOLACTONE [Concomitant]
     Active Substance: SPIRONOLACTONE
     Indication: Cardiac disorder
     Dosage: 1 DOSAGE FORM, QD (START DATE: 3 YEARS AGO (THE EXACT DATE IS UNKNOWN), EVERY 24 HOURS)
     Route: 048
  5. DIGOXIN [Concomitant]
     Active Substance: DIGOXIN
     Indication: Cardiac disorder
     Dosage: 1 DOSAGE FORM, QD (START DATE: 3 YEARS AGO (THE EXACT DATE IS UNKNOWN), EVERY 24 HOURS)
     Route: 048
  6. SILDENAFIL [Concomitant]
     Active Substance: SILDENAFIL
     Indication: Cardiac disorder
     Dosage: 0.25 DOSAGE FORM, TID (START DATE: 2 YEARS AGO (THE EXACT DATE IS UNKNOWN))
     Route: 048
  7. CARVEDILOL [Concomitant]
     Active Substance: CARVEDILOL
     Indication: Cardiac disorder
     Dosage: 1 DOSAGE FORM, BID (START DATE AND STOP DATE: THE EXACT DATE IS UNKNOWN)
     Route: 048
     Dates: start: 2022, end: 2022
  8. LORATADINE [Concomitant]
     Active Substance: LORATADINE
     Indication: Hypersensitivity
     Dosage: 1 DOSAGE FORM, QD (START DATE: 3 YEARS AGO (THE EXACT DATE IS UNKNOWN), EVERY 24 HOURS)
     Route: 048

REACTIONS (4)
  - Dyspnoea [Recovering/Resolving]
  - Dizziness [Recovering/Resolving]
  - Cardiac dysfunction [Recovered/Resolved]
  - Blood pressure decreased [Recovered/Resolved]

NARRATIVE: CASE EVENT DATE: 20220101
